FAERS Safety Report 13841083 (Version 2)
Quarter: 2017Q4

REPORT INFORMATION
  Report Type: Spontaneous
  Country: FR (occurrence: FR)
  Receive Date: 20170807
  Receipt Date: 20171124
  Transmission Date: 20180320
  Serious: Yes (Hospitalization)
  Sender: FDA-Public Use
  Company Number: PHHY2017FR115379

PATIENT
  Age: 33 Year
  Sex: Male

DRUGS (18)
  1. NEBCINE [Suspect]
     Active Substance: TOBRAMYCIN
     Indication: PNEUMONIA STAPHYLOCOCCAL
     Dosage: 400 MG, QD
     Route: 041
     Dates: start: 20170612, end: 20170612
  2. NEBCINE [Suspect]
     Active Substance: TOBRAMYCIN
     Dosage: 400 MG, QD
     Route: 041
     Dates: start: 20170710, end: 20170711
  3. COLIMYCINE [Suspect]
     Active Substance: COLISTIMETHATE SODIUM
     Dosage: 8 DF, (2 DF,1 IN 6 HR)
     Route: 055
     Dates: start: 20170626, end: 20170703
  4. NEBCINE [Suspect]
     Active Substance: TOBRAMYCIN
     Indication: PNEUMONIA STREPTOCOCCAL
     Dosage: 400 MG, QD
     Route: 041
     Dates: start: 20170622, end: 20170624
  5. COLIMYCINE [Suspect]
     Active Substance: COLISTIMETHATE SODIUM
     Indication: PNEUMONIA STAPHYLOCOCCAL
     Dosage: 8 DF, (2 DF,1 IN 6 HR)
     Route: 055
     Dates: start: 20170602, end: 20170614
  6. COLIMYCINE [Suspect]
     Active Substance: COLISTIMETHATE SODIUM
     Dosage: 8 DF, (2 DF,1 IN 6 HR)
     Route: 055
     Dates: start: 20170710, end: 20170711
  7. FOSFOCINE [Concomitant]
     Active Substance: FOSFOMYCIN
     Indication: PNEUMONIA STAPHYLOCOCCAL
     Dosage: UNK
     Route: 041
     Dates: start: 20170602, end: 20170617
  8. FOSFOCINE [Concomitant]
     Active Substance: FOSFOMYCIN
     Dosage: UNK
     Route: 041
     Dates: start: 20170622, end: 20170623
  9. ZERBAXA [Suspect]
     Active Substance: CEFTOLOZANE SULFATE\TAZOBACTAM SODIUM
     Dosage: 6 G, UNK (2 G, 1 IN 8 HOUR)
     Route: 041
     Dates: start: 20170709, end: 20170711
  10. COLIMYCINE [Suspect]
     Active Substance: COLISTIMETHATE SODIUM
     Indication: PNEUMONIA STREPTOCOCCAL
     Dosage: 8 DF, (2 DF,1 IN 6 HR)
     Route: 055
     Dates: start: 20170617, end: 20170623
  11. MYCAMINE [Concomitant]
     Active Substance: MICAFUNGIN SODIUM
     Dosage: 100 MG, UNK
     Route: 041
     Dates: start: 20170617, end: 20170617
  12. CIFLOX [Concomitant]
     Active Substance: CIPROFLOXACIN
     Indication: PNEUMONIA STAPHYLOCOCCAL
     Dosage: UNK
     Dates: start: 20170601, end: 20170602
  13. ARGANOVA [Suspect]
     Active Substance: ARGATROBAN
     Indication: THROMBOPHLEBITIS SEPTIC
     Dosage: UNK
     Route: 041
     Dates: start: 20170511, end: 20170712
  14. NEBCINE [Suspect]
     Active Substance: TOBRAMYCIN
     Dosage: 400 MG, QD
     Route: 041
     Dates: start: 20170629, end: 20170701
  15. MYCAMINE [Concomitant]
     Active Substance: MICAFUNGIN SODIUM
     Dosage: UNK
     Route: 041
     Dates: start: 20170605, end: 20170612
  16. ZERBAXA [Suspect]
     Active Substance: CEFTOLOZANE SULFATE\TAZOBACTAM SODIUM
     Indication: SEPTIC SHOCK
     Dosage: 6 G, UNK (2 G, 1 IN 8 HOUR)
     Route: 041
     Dates: start: 20170624, end: 20170629
  17. METHADONE [Suspect]
     Active Substance: METHADONE HYDROCHLORIDE
     Indication: DRUG DEPENDENCE
     Dosage: 30 MG, QD
     Route: 048
     Dates: start: 20170602
  18. MYCAMINE [Concomitant]
     Active Substance: MICAFUNGIN SODIUM
     Indication: SYSTEMIC CANDIDA
     Dosage: UNK
     Route: 041
     Dates: start: 20170601

REACTIONS (3)
  - Lymphopenia [Recovered/Resolved]
  - Neutropenia [Recovered/Resolved]
  - Leukopenia [Recovered/Resolved]

NARRATIVE: CASE EVENT DATE: 20170702
